FAERS Safety Report 23776826 (Version 1)
Quarter: 2024Q2

REPORT INFORMATION
  Report Type: Spontaneous
  Country: US (occurrence: US)
  Receive Date: 20240424
  Receipt Date: 20240424
  Transmission Date: 20240715
  Serious: Yes (Other)
  Sender: FDA-Public Use
  Company Number: US-MLMSERVICE-20170801-0833056-1

PATIENT
  Age: 72 Year
  Sex: Male

DRUGS (4)
  1. DOCETAXEL [Suspect]
     Active Substance: DOCETAXEL\DOCETAXEL ANHYDROUS
     Indication: Prostate cancer metastatic
     Dosage: 75 MILLIGRAM/SQ. METER (143 MG)
     Route: 042
  2. SODIUM CHLORIDE [Concomitant]
     Active Substance: SODIUM CHLORIDE
     Indication: Product used for unknown indication
     Dosage: 250 MILLILITER
     Route: 065
  3. DEGARELIX [Concomitant]
     Active Substance: DEGARELIX
     Indication: Product used for unknown indication
     Dosage: UNK
     Route: 065
  4. RILIMOGENE GALVACIREPVEC [Concomitant]
     Active Substance: RILIMOGENE GALVACIREPVEC
     Indication: Product used for unknown indication
     Dosage: UNK
     Route: 058

REACTIONS (2)
  - Infusion site extravasation [Recovered/Resolved]
  - Infusion site plaque [Recovered/Resolved]
